FAERS Safety Report 6542603-4 (Version None)
Quarter: 2010Q1

REPORT INFORMATION
  Report Type: 
  Country: None (occurrence: None)
  Receive Date: 20100114
  Receipt Date: 20091223
  Transmission Date: 20100710
  Serious: Yes (Other)
  Sender: FDA-Public Use
  Company Number: 2009SP043647

PATIENT
  Age: 33 Year
  Sex: Male

DRUGS (4)
  1. NASONEX [Suspect]
     Indication: ASTHMA
     Dosage: 2 DF;BID;NAS
     Route: 045
     Dates: start: 20090401
  2. NASONEX [Suspect]
     Indication: OFF LABEL USE
     Dosage: 2 DF;BID;NAS
     Route: 045
     Dates: start: 20090401
  3. PROVENTIL-HFA [Concomitant]
  4. ASMANEX TWISTHALER [Concomitant]

REACTIONS (4)
  - DEPRESSION [None]
  - DISSOCIATION [None]
  - HEADACHE [None]
  - SUICIDAL IDEATION [None]
